FAERS Safety Report 12195193 (Version 1)
Quarter: 2016Q1

REPORT INFORMATION
  Report Type: Spontaneous
  Country: CA (occurrence: CA)
  Receive Date: 20160321
  Receipt Date: 20160321
  Transmission Date: 20160526
  Serious: Yes (Hospitalization)
  Sender: FDA-Public Use
  Company Number: CA-PFIZER INC-2016158061

PATIENT
  Age: 21 Month
  Sex: Female

DRUGS (1)
  1. CHILDRENS ADVIL [Suspect]
     Active Substance: IBUPROFEN

REACTIONS (4)
  - Poor quality drug administered [Unknown]
  - Vomiting [Unknown]
  - Drug administration error [Unknown]
  - Product quality issue [Unknown]
